FAERS Safety Report 6696456-4 (Version None)
Quarter: 2010Q2

REPORT INFORMATION
  Report Type: 
  Country: None (occurrence: None)
  Receive Date: 20100426
  Receipt Date: 20100415
  Transmission Date: 20101027
  Serious: Yes (Hospitalization)
  Sender: FDA-Public Use
  Company Number: US-ROCHE-697876

PATIENT
  Sex: Female
  Weight: 57.4 kg

DRUGS (11)
  1. TOCILIZUMAB [Suspect]
     Indication: RHEUMATOID ARTHRITIS
     Dosage: DOSE: 11.5 ML, DOSAGE FORM: 400MG VIAL
     Route: 042
     Dates: start: 20091210
  2. PERCOCET [Concomitant]
     Dosage: DOSE: 5-325 MG, TDD: 3 TABLETS
     Dates: start: 20040701
  3. FOLIC ACID [Concomitant]
     Dates: start: 20010101
  4. MORPHINE SULFATE [Concomitant]
     Dosage: DRUG REPORTED AS MORPHINE SULFATE CHLORIDE
     Dates: start: 20070701
  5. ISOSORBIDE DINITRATE [Concomitant]
     Dates: start: 19990101
  6. CREON [Concomitant]
     Dosage: CREON CAPSULE 20, DOSE: 3 TABLETS
     Dates: start: 20080901
  7. TEGRETOL-XR [Concomitant]
     Dates: start: 20030311
  8. SIMVASTATIN [Concomitant]
     Dates: start: 20040101
  9. METOPROLOL TARTRATE [Concomitant]
     Dates: start: 19990101
  10. PREVACID [Concomitant]
     Dates: start: 20080101
  11. ASPIRIN [Concomitant]
     Dosage: DRUG NAME REPORTED AS ASPIRIN 81 MG
     Dates: start: 19990101

REACTIONS (1)
  - COLITIS ISCHAEMIC [None]
